FAERS Safety Report 5690771-9 (Version None)
Quarter: 2008Q2

REPORT INFORMATION
  Report Type: 
  Country: None (occurrence: None)
  Receive Date: 20080401
  Receipt Date: 20080324
  Transmission Date: 20081010
  Serious: Yes (Life-Threatening, Hospitalization, Disabling, Other)
  Sender: FDA-Public Use
  Company Number: A0711355A

PATIENT
  Age: 50 Year
  Sex: Female
  Weight: 75.5 kg

DRUGS (6)
  1. ARIXTRA [Suspect]
     Indication: DEEP VEIN THROMBOSIS
     Route: 058
  2. CLARITIN [Concomitant]
     Indication: RHINITIS
     Route: 048
     Dates: start: 20080218, end: 20080221
  3. COLACE [Concomitant]
     Indication: CONSTIPATION
     Route: 048
     Dates: end: 20080221
  4. FENTANYL [Concomitant]
     Indication: PAIN
     Route: 062
     Dates: start: 20080218, end: 20080221
  5. DRONABINOL [Concomitant]
     Indication: NAUSEA
     Route: 048
     Dates: start: 20080218, end: 20080221
  6. MORPHINE [Concomitant]
     Indication: PAIN
     Dates: start: 20080214, end: 20080221

REACTIONS (9)
  - APHASIA [None]
  - CONFUSIONAL STATE [None]
  - FALL [None]
  - HAEMORRHAGE [None]
  - HAEMORRHAGE INTRACRANIAL [None]
  - HEAD INJURY [None]
  - HEMIPARESIS [None]
  - LETHARGY [None]
  - SUBDURAL HAEMATOMA [None]
